FAERS Safety Report 10640538 (Version 1)
Quarter: 2014Q4

REPORT INFORMATION
  Report Type: Spontaneous
  Country: DE (occurrence: None)
  Receive Date: 20141205
  Receipt Date: 20141205
  Transmission Date: 20150529
  Serious: Yes (Hospitalization, Other)
  Sender: FDA-Public Use
  Company Number: DE-ZYDUS-005838

PATIENT
  Age: 41 Year
  Sex: Female

DRUGS (9)
  1. DIPYRONE [Suspect]
     Active Substance: DIPYRONE
  2. ANAESTHETICS (ANAESTHETICS) [Concomitant]
     Active Substance: UNSPECIFIED INGREDIENT
  3. MIRTAZAPINE (MIRTAZAPINE) [Suspect]
     Active Substance: MIRTAZAPINE
  4. VALPROIC ACID (VALPROIC ACID) [Suspect]
     Active Substance: VALPROIC ACID
  5. IGG (IGG) [Concomitant]
  6. IMMUNOGLOBULIN (IMMUNOGLOBULIN) [Concomitant]
  7. ANALGESICS (ANALGESICS) (ANALGESICS) [Concomitant]
     Active Substance: UNSPECIFIED INGREDIENT
  8. LEVETIRACETAM (LEVETIRACETAM) [Concomitant]
     Active Substance: LEVETIRACETAM
  9. MESALAZINE (MESALAZINE) [Concomitant]
     Active Substance: MESALAMINE

REACTIONS (12)
  - Central nervous system lesion [None]
  - Encephalopathy [None]
  - Small intestinal obstruction [None]
  - Vomiting [None]
  - Clostridium difficile colitis [None]
  - Porphyria acute [None]
  - Weight increased [None]
  - Cognitive disorder [None]
  - Urge incontinence [None]
  - Motor dysfunction [None]
  - Cardiac arrest [None]
  - Pyrexia [None]
